FAERS Safety Report 4284138-8 (Version None)
Quarter: 2004Q1

REPORT INFORMATION
  Report Type: 
  Country: None (occurrence: None)
  Receive Date: 20040203
  Receipt Date: 20040130
  Transmission Date: 20041129
  Serious: Yes (Other)
  Sender: FDA-Public Use
  Company Number: US-GLAXOSMITHKLINE-A0495945A

PATIENT
  Sex: Female

DRUGS (5)
  1. HYCAMTIN [Suspect]
     Indication: METASTASES TO OVARY
     Route: 042
  2. EPOGEN [Concomitant]
  3. NEUPOGEN [Concomitant]
  4. MAGNESIUM [Concomitant]
  5. PLAQUENIL [Concomitant]

REACTIONS (1)
  - RHEUMATOID ARTHRITIS [None]
